FAERS Safety Report 6706892-5 (Version None)
Quarter: 2010Q2

REPORT INFORMATION
  Report Type: 
  Country: None (occurrence: None)
  Receive Date: 20100503
  Receipt Date: 20100422
  Transmission Date: 20101027
  Serious: Yes (Other)
  Sender: FDA-Public Use
  Company Number: US-PFIZER INC-2010051878

PATIENT
  Sex: Female
  Weight: 53.515 kg

DRUGS (9)
  1. XANAX [Suspect]
     Indication: BIPOLAR DISORDER
     Dosage: UNK MG, AS NEEDED
     Route: 048
     Dates: start: 20090101
  2. XANAX [Suspect]
     Indication: ANXIETY
  3. XANAX [Suspect]
     Indication: POST-TRAUMATIC STRESS DISORDER
  4. LYRICA [Suspect]
     Indication: FIBROMYALGIA
     Dosage: 75 MG, 2X/DAY
     Route: 048
     Dates: start: 20100408
  5. LORCET-HD [Concomitant]
     Indication: PAIN
     Dosage: 10/650 MG, UNK
  6. LORCET-HD [Concomitant]
     Indication: MUSCLE TIGHTNESS
  7. SOMA [Concomitant]
     Indication: PAIN
     Dosage: 350 MG, UNK
  8. SOMA [Concomitant]
     Indication: MUSCLE TIGHTNESS
  9. PERPHENAZINE [Concomitant]
     Indication: BIPOLAR DISORDER
     Dosage: 8 MG, UNK

REACTIONS (10)
  - ABDOMINAL DISCOMFORT [None]
  - DYSPNOEA [None]
  - FIBROMYALGIA [None]
  - PAIN [None]
  - PRURITUS [None]
  - RASH [None]
  - SOMNOLENCE [None]
  - URTICARIA [None]
  - VISUAL ACUITY REDUCED [None]
  - WEIGHT INCREASED [None]
